APPROVED DRUG PRODUCT: ITRACONAZOLE
Active Ingredient: ITRACONAZOLE
Strength: 100MG
Dosage Form/Route: CAPSULE;ORAL
Application: A206410 | Product #001
Applicant: STRIDES PHARMA GLOBAL PTE LTD
Approved: Jul 2, 2019 | RLD: No | RS: No | Type: DISCN